FAERS Safety Report 9355739 (Version 1)
Quarter: 2013Q2

REPORT INFORMATION
  Report Type: Spontaneous
  Country: US (occurrence: US)
  Receive Date: 20130619
  Receipt Date: 20130619
  Transmission Date: 20140414
  Serious: No
  Sender: FDA-Public Use
  Company Number: US-PFIZER INC-2013181564

PATIENT
  Age: 51 Year
  Sex: Female

DRUGS (10)
  1. CELEBREX [Suspect]
     Dosage: UNK
  2. IBUPROFEN [Suspect]
     Dosage: UNK
  3. NITROFURANTOIN MONOHYDRATE [Suspect]
     Dosage: UNK
  4. ZPACK [Suspect]
     Dosage: UNK
  5. BACTRIM [Suspect]
     Dosage: UNK
  6. BIAXIN [Suspect]
     Dosage: UNK
  7. KEFLEX [Suspect]
     Dosage: UNK
  8. QUININE [Suspect]
     Dosage: UNK
  9. AMITRIPTYLINE [Suspect]
     Dosage: UNK
  10. PROZAC [Suspect]
     Dosage: UNK

REACTIONS (1)
  - Drug hypersensitivity [Unknown]
